FAERS Safety Report 18370473 (Version 1)
Quarter: 2020Q4

REPORT INFORMATION
  Report Type: Spontaneous
  Country: JP (occurrence: JP)
  Receive Date: 20201012
  Receipt Date: 20201012
  Transmission Date: 20210114
  Serious: Yes (Other)
  Sender: FDA-Public Use
  Company Number: JP-ASTELLAS-2020JP015079

PATIENT
  Sex: Male

DRUGS (3)
  1. INSULIN [Concomitant]
     Active Substance: INSULIN NOS
     Indication: DIABETES MELLITUS
     Dosage: UNK UNK, UNKNOWN FREQ.
     Route: 065
  2. XOSPATA [Suspect]
     Active Substance: GILTERITINIB
     Indication: LEUKAEMIA
     Route: 048
  3. REGNITE [Suspect]
     Active Substance: GABAPENTIN ENACARBIL
     Indication: RESTLESS LEGS SYNDROME
     Dosage: UNK UNK, UNKNOWN FREQ.
     Route: 048
     Dates: start: 202008

REACTIONS (4)
  - Gingival bleeding [Recovered/Resolved]
  - Malaise [Unknown]
  - Dizziness [Unknown]
  - Internal haemorrhage [Recovered/Resolved]
